FAERS Safety Report 8342753-6 (Version None)
Quarter: 2012Q2

REPORT INFORMATION
  Report Type: 
  Country: None (occurrence: None)
  Receive Date: 20120503
  Receipt Date: 20110607
  Transmission Date: 20120825
  Serious: Yes (Hospitalization)
  Sender: FDA-Public Use
  Company Number: BR-022894

PATIENT
  Age: 70 Year
  Sex: Male
  Weight: 68.2 kg

DRUGS (1)
  1. (CHLORAMBUCIL) [Suspect]
     Indication: CHRONIC LYMPHOCYTIC LEUKAEMIA
     Dosage: 10 MG/M2 AT DAYS 1-7 EVERY 28 DAYS
     Route: 048
     Dates: start: 20110330

REACTIONS (3)
  - DYSPNOEA [None]
  - COUGH [None]
  - PNEUMONIA [None]
